FAERS Safety Report 16412151 (Version 1)
Quarter: 2019Q2

REPORT INFORMATION
  Report Type: Spontaneous
  Country: US (occurrence: US)
  Receive Date: 20190610
  Receipt Date: 20190610
  Transmission Date: 20190711
  Serious: No
  Sender: FDA-Public Use
  Company Number: US-009507513-1905USA013153

PATIENT
  Age: 55 Year
  Sex: Female

DRUGS (9)
  1. VALGANCICLOVIR HYDROCHLORIDE. [Concomitant]
     Active Substance: VALGANCICLOVIR HYDROCHLORIDE
     Indication: EPSTEIN-BARR VIRUS INFECTION
  2. CYCLOPHOSPHAMIDE. [Concomitant]
     Active Substance: CYCLOPHOSPHAMIDE
     Indication: DIFFUSE LARGE B-CELL LYMPHOMA
  3. PREDNISONE. [Concomitant]
     Active Substance: PREDNISONE
     Indication: DIFFUSE LARGE B-CELL LYMPHOMA
  4. RITUXIMAB. [Concomitant]
     Active Substance: RITUXIMAB
     Indication: DIFFUSE LARGE B-CELL LYMPHOMA
  5. VINCRISTINE [Concomitant]
     Active Substance: VINCRISTINE
     Indication: DIFFUSE LARGE B-CELL LYMPHOMA
  6. ACYCLOVIR. [Concomitant]
     Active Substance: ACYCLOVIR
     Route: 042
  7. VALGANCICLOVIR HYDROCHLORIDE. [Concomitant]
     Active Substance: VALGANCICLOVIR HYDROCHLORIDE
     Indication: ENCEPHALITIS
     Dosage: UNK
  8. TEMODAR [Suspect]
     Active Substance: TEMOZOLOMIDE
     Indication: DIFFUSE LARGE B-CELL LYMPHOMA
     Route: 048
  9. DOXORUBICIN [Concomitant]
     Active Substance: DOXORUBICIN
     Indication: DIFFUSE LARGE B-CELL LYMPHOMA

REACTIONS (1)
  - Product use in unapproved indication [Unknown]
